FAERS Safety Report 6639754 (Version 11)
Quarter: 2013Q2

REPORT INFORMATION
  Report Type: Spontaneous
  Country: US (occurrence: US)
  Receive Date: 20080514
  Receipt Date: 20120515
  Transmission Date: 20140414
  Serious: Yes (Other)
  Sender: FDA-Public Use
  Company Number: PHEH2008US04439

PATIENT
  Age: 62 Year
  Sex: Female

DRUGS (12)
  1. ZOMETA (ZOLEDRONATE) SOLUTION FOR INJECTION [Suspect]
     Indication: NEOPLASM MALIGNANT
     Dosage: INFUSION
     Dates: start: 2003, end: 200405
  2. AREDIA [Suspect]
     Dosage: 90 MG, QMO
  3. TAMOXIFEN CITRATE [Concomitant]
  4. MINOCYCLINE HYDROCHLORIDE [Concomitant]
  5. IMIPRAMINE [Concomitant]
  6. INDERAL [Concomitant]
     Dosage: 20 MG, BID
  7. XANAX [Concomitant]
     Dosage: 0.25 MG, TID
  8. VICOPROFEN [Concomitant]
     Dosage: @ TIMES DAILY
  9. LOPRESSOR [Concomitant]
     Dosage: 5 MG, TID
     Dates: start: 20000815
  10. THALIDOMIDE [Concomitant]
  11. LEVAQUIN [Concomitant]
     Dosage: 500 MG, UNK
  12. CALCIUM WITH VITAMIN D [Concomitant]
     Dosage: 600 UNK, UNK

REACTIONS (39)
  - CLOSTRIDIUM DIFFICILE COLITIS [Unknown]
  - SPINAL OSTEOARTHRITIS [Unknown]
  - INTERVERTEBRAL DISC DEGENERATION [Unknown]
  - INTERVERTEBRAL DISC DISORDER [Unknown]
  - BACK PAIN [Unknown]
  - Compression fracture [Unknown]
  - FOOT FRACTURE [Unknown]
  - URINARY TRACT INFECTION [Unknown]
  - DIVERTICULITIS [Unknown]
  - OSTEONECROSIS OF JAW [Unknown]
  - PAIN [Unknown]
  - DISCOMFORT [Unknown]
  - HYPOPHAGIA [Unknown]
  - Scar [Unknown]
  - EMOTIONAL DISTRESS [Unknown]
  - ANXIETY [Unknown]
  - LIFE EXPECTANCY SHORTENED [Unknown]
  - ANHEDONIA [Unknown]
  - PHYSICAL DISABILITY [Unknown]
  - INJURY [Unknown]
  - TOOTH LOSS [Unknown]
  - ORAL INFECTION [Unknown]
  - GINGIVAL DISORDER [Unknown]
  - GINGIVAL BLEEDING [Unknown]
  - Gingivitis [Unknown]
  - DENTURE WEARER [Unknown]
  - TOOTH DISORDER [Recovering/Resolving]
  - PAIN IN JAW [Unknown]
  - PRIMARY SEQUESTRUM [Unknown]
  - SWELLING [Unknown]
  - FISTULA [Unknown]
  - SWELLING FACE [Unknown]
  - TEMPERATURE INTOLERANCE [Unknown]
  - IMMUNOGLOBULINS DECREASED [Unknown]
  - HERPES ZOSTER [Unknown]
  - COLITIS [Unknown]
  - SENSORY LOSS [Unknown]
  - CYSTOCELE [Unknown]
  - FATIGUE [Unknown]
